FAERS Safety Report 10486637 (Version 1)
Quarter: 2014Q4

REPORT INFORMATION
  Report Type: Spontaneous
  Country: US (occurrence: US)
  Receive Date: 20141001
  Receipt Date: 20141001
  Transmission Date: 20150528
  Serious: No
  Sender: FDA-Public Use
  Company Number: US-KOWA-2014S1000845

PATIENT
  Age: 85 Year
  Sex: Female

DRUGS (2)
  1. LIVALO [Suspect]
     Active Substance: PITAVASTATIN CALCIUM
     Indication: BLOOD CHOLESTEROL
     Route: 048
     Dates: start: 201406
  2. ESOMEPRAZOLE MAGNESIUM. [Concomitant]
     Active Substance: ESOMEPRAZOLE MAGNESIUM
     Indication: DYSPEPSIA

REACTIONS (2)
  - Wrong technique in drug usage process [Unknown]
  - No adverse event [Unknown]

NARRATIVE: CASE EVENT DATE: 201406
